FAERS Safety Report 9894544 (Version 2)
Quarter: 2014Q1

REPORT INFORMATION
  Report Type: Spontaneous
  Country: NO (occurrence: NO)
  Receive Date: 20140213
  Receipt Date: 20140306
  Transmission Date: 20141002
  Serious: Yes (Hospitalization, Other)
  Sender: FDA-Public Use
  Company Number: PHHY2014NO017497

PATIENT
  Age: 45 Year
  Sex: Female

DRUGS (1)
  1. TEGRETOL [Suspect]
     Indication: EPILEPSY
     Dosage: UNK UKN, UNK
     Route: 048
     Dates: start: 1976, end: 2008

REACTIONS (5)
  - Deep vein thrombosis [Recovered/Resolved with Sequelae]
  - Cerebrovascular accident [Unknown]
  - Hemiparesis [Unknown]
  - Psychogenic seizure [Unknown]
  - Skin disorder [Unknown]
